FAERS Safety Report 6554188-7 (Version None)
Quarter: 2010Q1

REPORT INFORMATION
  Report Type: 
  Country: None (occurrence: None)
  Receive Date: 20100127
  Receipt Date: 20100120
  Transmission Date: 20100710
  Serious: Yes (Other)
  Sender: FDA-Public Use
  Company Number: CH-PFIZER INC-2009304087

PATIENT
  Age: 53 Year
  Sex: Male
  Weight: 84 kg

DRUGS (2)
  1. SOLU-MEDROL [Suspect]
     Indication: VOMITING
     Dosage: 125 MG, UNK
     Route: 042
     Dates: end: 20091130
  2. NAVOBAN [Concomitant]
     Indication: VOMITING
     Dosage: 5 MG, UNK
     Route: 042
     Dates: start: 20091130

REACTIONS (6)
  - ABDOMINAL PAIN [None]
  - DIZZINESS [None]
  - DYSPNOEA [None]
  - HYPERSENSITIVITY [None]
  - NAUSEA [None]
  - SNEEZING [None]
